FAERS Safety Report 6200324-1 (Version None)
Quarter: 2009Q2

REPORT INFORMATION
  Report Type: 
  Country: None (occurrence: None)
  Receive Date: 20090518
  Receipt Date: 20090410
  Transmission Date: 20091009
  Serious: No
  Sender: FDA-Public Use
  Company Number: WAES 0904USA01540

PATIENT
  Age: 79 Year
  Sex: Female

DRUGS (7)
  1. JANUVIA [Suspect]
     Indication: DIABETES MELLITUS
     Dosage: 100 MG/DAILY/PO
     Route: 048
     Dates: start: 20090326
  2. NASACORT [Concomitant]
  3. PLAVIX [Concomitant]
  4. XANAX [Concomitant]
  5. CIPROFLOXACIN [Concomitant]
  6. METOPROLOL SUCCINATE [Concomitant]
  7. TRAZODONE HYDROCHLORIDE [Concomitant]

REACTIONS (2)
  - CONSTIPATION [None]
  - DRY EYE [None]
